FAERS Safety Report 12667863 (Version 1)
Quarter: 2016Q3

REPORT INFORMATION
  Report Type: Spontaneous
  Country: MX (occurrence: MX)
  Receive Date: 20160819
  Receipt Date: 20160819
  Transmission Date: 20161109
  Serious: Yes (Other)
  Sender: FDA-Public Use
  Company Number: MX-009507513-1608MEX007727

PATIENT
  Age: 37 Year
  Sex: Female

DRUGS (1)
  1. EMEND (FOSAPREPITANT DIMEGLUMINE) [Suspect]
     Active Substance: FOSAPREPITANT DIMEGLUMINE
     Indication: PROPHYLAXIS OF NAUSEA AND VOMITING
     Dosage: 150 MG, ONE DOSE
     Route: 042
     Dates: start: 20160805, end: 20160805

REACTIONS (6)
  - Loss of consciousness [Unknown]
  - Abdominal pain [Unknown]
  - Nausea [Unknown]
  - Dizziness [Unknown]
  - Seizure [Unknown]
  - Erythema [Unknown]

NARRATIVE: CASE EVENT DATE: 20160805
